FAERS Safety Report 5470004-9 (Version None)
Quarter: 2007Q3

REPORT INFORMATION
  Report Type: 
  Country: None (occurrence: None)
  Receive Date: 20070927
  Receipt Date: 20070918
  Transmission Date: 20080115
  Serious: Yes (Other)
  Sender: FDA-Public Use
  Company Number: US-GENENTECH-241548

PATIENT
  Age: 59 Year
  Sex: Male

DRUGS (7)
  1. BEVACIZUMAB [Suspect]
     Indication: METASTATIC RENAL CELL CARCINOMA
     Dosage: 10 MG/KG, Q2W
     Route: 042
     Dates: start: 20040802, end: 20051206
  2. INTERFERON ALFA-2B [Suspect]
     Indication: METASTATIC RENAL CELL CARCINOMA
     Dosage: 7000000 UNIT, 3/WEEK
     Route: 058
  3. QUINAPRIL HCL [Concomitant]
     Indication: DRUG USE FOR UNKNOWN INDICATION
     Dosage: 20 MG, QD
  4. HYDROCHLOROTHIAZIDE [Concomitant]
     Indication: DRUG USE FOR UNKNOWN INDICATION
     Dosage: 12.5 MG, QD
  5. GLIMEPIRIDE [Concomitant]
     Indication: DRUG USE FOR UNKNOWN INDICATION
     Dosage: 2 MG, QD
  6. AMLODIPINE [Concomitant]
     Indication: HYPERTENSION
     Dosage: 5 MG, QD
  7. TELMISARTAN [Concomitant]
     Indication: HYPERTENSION
     Dosage: 40 MG, QD

REACTIONS (6)
  - ANXIETY [None]
  - BLOOD CREATININE INCREASED [None]
  - DEPRESSION [None]
  - GLOMERULONEPHRITIS [None]
  - PROTEINURIA [None]
  - THROMBOTIC MICROANGIOPATHY [None]
